FAERS Safety Report 5657370-6 (Version None)
Quarter: 2008Q1

REPORT INFORMATION
  Report Type: 
  Country: None (occurrence: None)
  Receive Date: 20080310
  Receipt Date: 20080228
  Transmission Date: 20080703
  Serious: Yes (Other)
  Sender: FDA-Public Use
  Company Number: PHHY2008JP02301

PATIENT
  Age: 78 Year
  Sex: Female

DRUGS (8)
  1. MUCODYNE [Concomitant]
     Dates: start: 20060101
  2. ONEALFA [Concomitant]
     Dosage: UNK, UNK
     Dates: start: 20050801
  3. BONALON [Concomitant]
     Dosage: 5 MG, UNK
     Dates: start: 20050801
  4. ZADITEN [Suspect]
     Indication: URTICARIA
     Dosage: 1MG/DAY
     Route: 048
     Dates: start: 20071127, end: 20080117
  5. ZADITEN [Suspect]
     Dosage: 1MG/DAY
     Route: 048
     Dates: start: 20080221, end: 20080221
  6. MUCOSTA [Concomitant]
     Dosage: UNK, UNK
     Dates: start: 20050801
  7. ALESION [Suspect]
     Indication: URTICARIA
     Dosage: 20MG/DAY
     Route: 048
     Dates: start: 20071127, end: 20080117
  8. ALESION [Suspect]
     Dosage: 20MG/DAY
     Route: 048
     Dates: start: 20080222, end: 20080222

REACTIONS (10)
  - BLOOD CREATININE DECREASED [None]
  - BLOOD GLUCOSE INCREASED [None]
  - BLOOD LACTATE DEHYDROGENASE DECREASED [None]
  - CHEILITIS [None]
  - DERMATITIS EXFOLIATIVE [None]
  - FEELING HOT [None]
  - GENERALISED ERYTHEMA [None]
  - LYMPHOCYTE COUNT DECREASED [None]
  - NEUTROPHIL COUNT INCREASED [None]
  - SKIN IRRITATION [None]
